FAERS Safety Report 11696061 (Version 1)
Quarter: 2015Q4

REPORT INFORMATION
  Report Type: Spontaneous
  Country: US (occurrence: None)
  Receive Date: 20151103
  Receipt Date: 20151103
  Transmission Date: 20160304
  Serious: No
  Sender: FDA-Public Use
  Company Number: None

PATIENT
  Age: 68 Year
  Sex: Female
  Weight: 100.02 kg

DRUGS (2)
  1. CONTRAVE [Suspect]
     Active Substance: BUPROPION HYDROCHLORIDE\NALTREXONE HYDROCHLORIDE
     Indication: DECREASED APPETITE
     Dosage: 1@DAY - WK?2XDAY FOR WK?3XDAY FOR WK?THEN 4XDAY 120?LITTLE OVER 2 MO
     Dates: start: 20150618, end: 20150922
  2. OCCUVITE [Concomitant]

REACTIONS (6)
  - Nausea [None]
  - Dizziness [None]
  - Hyperhidrosis [None]
  - Dysgeusia [None]
  - Somnolence [None]
  - Hypersomnia [None]
